FAERS Safety Report 8465650-4 (Version None)
Quarter: 2012Q2

REPORT INFORMATION
  Report Type: 
  Country: None (occurrence: None)
  Receive Date: 20120626
  Receipt Date: 20120612
  Transmission Date: 20120825
  Serious: No
  Sender: FDA-Public Use
  Company Number: US-ASTRAZENECA-2012SE39220

PATIENT
  Age: 43 Year
  Sex: Female
  Weight: 90.7 kg

DRUGS (1)
  1. SEROQUEL XR [Suspect]
     Indication: BIPOLAR DISORDER
     Route: 048
     Dates: start: 20100101

REACTIONS (2)
  - MENOPAUSAL SYMPTOMS [None]
  - BIPOLAR DISORDER [None]
